FAERS Safety Report 4938227-2 (Version None)
Quarter: 2006Q1

REPORT INFORMATION
  Report Type: 
  Country: None (occurrence: None)
  Receive Date: 20060309
  Receipt Date: 20050927
  Transmission Date: 20060701
  Serious: Yes (Other)
  Sender: FDA-Public Use
  Company Number: US-ROCHE-419556

PATIENT
  Sex: Male
  Weight: 3.4 kg

DRUGS (2)
  1. ACCUTANE [Suspect]
     Indication: DRUG USE FOR UNKNOWN INDICATION
     Dates: start: 20050615, end: 20050615
  2. BIRTH CONTROL PILLS [Concomitant]
     Indication: CONTRACEPTION
     Dates: end: 20050315

REACTIONS (3)
  - DRUG EXPOSURE BEFORE PREGNANCY [None]
  - INFANT [None]
  - TRANSFUSION REACTION [None]
